FAERS Safety Report 9632872 (Version 2)
Quarter: 2013Q4

REPORT INFORMATION
  Report Type: Report from Study
  Country: KE (occurrence: KE)
  Receive Date: 20131018
  Receipt Date: 20131104
  Transmission Date: 20140711
  Serious: Yes (Death, Hospitalization)
  Sender: FDA-Public Use
  Company Number: KE-009507513-1310KEN006063

PATIENT
  Age: 48 Year
  Sex: Male

DRUGS (14)
  1. RALTEGRAVIR POTASSIUM [Suspect]
     Indication: HIV INFECTION
     Dosage: UNK
     Route: 048
     Dates: start: 20130924, end: 20131009
  2. TENOFOVIR [Suspect]
     Indication: HIV INFECTION
     Dosage: UNK
     Route: 048
     Dates: start: 20130924, end: 20131009
  3. EFAVIRENZ [Suspect]
     Indication: HIV INFECTION
     Dosage: UNK
     Route: 048
     Dates: start: 20130924, end: 20131009
  4. TRUVADA [Suspect]
     Indication: HIV INFECTION
     Dosage: UNK
     Route: 048
     Dates: start: 20130924, end: 20131009
  5. SULFAMETHOXAZOLE (+) TRIMETHOPRIM [Suspect]
     Dosage: UNK
     Dates: start: 20130916, end: 20131024
  6. SEPTRIN [Suspect]
     Dosage: UNK
     Dates: start: 20120916
  7. AZITHROMYCIN [Suspect]
     Dosage: UNK
     Dates: start: 20130918, end: 20130922
  8. BRUFEN [Suspect]
     Dosage: UNK
     Dates: start: 20130924, end: 20130928
  9. AMOXYL [Concomitant]
     Dosage: UNK
     Dates: start: 20130918, end: 20130923
  10. PREDNISONE [Suspect]
     Dosage: UNK
     Dates: start: 20130921, end: 20131022
  11. CEFTRIAXONE SODIUM [Suspect]
     Dosage: UNK
     Dates: start: 20131007, end: 20131021
  12. FLAGYL [Concomitant]
     Dosage: UNK
     Dates: start: 20131007, end: 20131024
  13. AMPHOTERICIN B [Suspect]
     Dosage: UNK
     Dates: start: 20131011, end: 20131023
  14. FLUCONAZOLE [Suspect]
     Dosage: UNK
     Dates: start: 20131011, end: 20131024

REACTIONS (4)
  - Meningitis cryptococcal [Fatal]
  - Vomiting [Fatal]
  - Renal failure acute [Fatal]
  - Anaemia [Fatal]
